FAERS Safety Report 23547930 (Version 1)
Quarter: 2024Q1

REPORT INFORMATION
  Report Type: Spontaneous
  Country: GB (occurrence: GB)
  Receive Date: 20240221
  Receipt Date: 20240221
  Transmission Date: 20240410
  Serious: Yes (Death, Life-Threatening, Hospitalization)
  Sender: FDA-Public Use
  Company Number: GB-TEVA-VS-3159770

PATIENT
  Age: 5 Decade
  Sex: Female

DRUGS (2)
  1. PREDNISOLONE [Suspect]
     Active Substance: PREDNISOLONE
     Indication: Hepatitis
     Route: 048
  2. METHYLPREDNISOLONE [Suspect]
     Active Substance: METHYLPREDNISOLONE
     Indication: Hepatitis
     Route: 042

REACTIONS (5)
  - Metastatic neoplasm [Fatal]
  - Right ventricular failure [Unknown]
  - Respiratory failure [Fatal]
  - Pulmonary tumour thrombotic microangiopathy [Fatal]
  - Pulmonary hypertension [Unknown]
